FAERS Safety Report 19002031 (Version 1)
Quarter: 2021Q1

REPORT INFORMATION
  Report Type: Spontaneous
  Country: GB (occurrence: GB)
  Receive Date: 20210312
  Receipt Date: 20210312
  Transmission Date: 20210420
  Serious: Yes (Hospitalization)
  Sender: FDA-Public Use
  Company Number: GB-TEVA-185896ISR

PATIENT
  Age: 60 Year
  Sex: Female

DRUGS (1)
  1. MORPHINE [Suspect]
     Active Substance: MORPHINE
     Indication: ABDOMINAL PAIN UPPER
     Dosage: 1100 MILLIGRAM DAILY; CONTROLLED RELEASE
     Route: 048

REACTIONS (8)
  - Confusional state [Recovered/Resolved]
  - Renal failure [Recovered/Resolved]
  - Agitation [Recovered/Resolved]
  - Hallucination [Recovered/Resolved]
  - Fear [Recovered/Resolved]
  - Myoclonus [Recovered/Resolved]
  - Hallucination, visual [Recovered/Resolved]
  - Toxicity to various agents [Recovering/Resolving]

NARRATIVE: CASE EVENT DATE: 200706
